FAERS Safety Report 4698178-8 (Version None)
Quarter: 2005Q2

REPORT INFORMATION
  Report Type: 
  Country: None (occurrence: None)
  Receive Date: 20050623
  Receipt Date: 20050617
  Transmission Date: 20051028
  Serious: Yes (Other)
  Sender: FDA-Public Use
  Company Number: NL-GLAXOSMITHKLINE-B0385267A

PATIENT
  Sex: Female

DRUGS (1)
  1. IMIGRAN [Suspect]
     Indication: DRUG USE FOR UNKNOWN INDICATION
     Route: 065

REACTIONS (3)
  - ADVERSE EVENT [None]
  - DEVICE MALFUNCTION [None]
  - PHARMACEUTICAL PRODUCT COMPLAINT [None]
